FAERS Safety Report 7330909-0 (Version None)
Quarter: 2011Q1

REPORT INFORMATION
  Report Type: 
  Country: None (occurrence: None)
  Receive Date: 20110225
  Receipt Date: 20110225
  Transmission Date: 20110831
  Serious: Yes (Hospitalization)
  Sender: FDA-Public Use
  Company Number: None

PATIENT
  Sex: Female
  Weight: 66 kg

DRUGS (3)
  1. CARBOPLATIN [Suspect]
     Dosage: 850 MG
     Dates: end: 20110118
  2. TAXOTERE [Suspect]
     Dosage: 120 MG
     Dates: end: 20110118
  3. HERCEPTIN [Suspect]
     Dosage: 132 MG
     Dates: end: 20110118

REACTIONS (1)
  - PLATELET COUNT DECREASED [None]
